FAERS Safety Report 18893677 (Version 1)
Quarter: 2021Q1

REPORT INFORMATION
  Report Type: Spontaneous
  Country: CA (occurrence: CA)
  Receive Date: 20210215
  Receipt Date: 20210215
  Transmission Date: 20210420
  Serious: Yes (Other)
  Sender: FDA-Public Use
  Company Number: CA-PURDUE-USA-2020-0200453

PATIENT
  Sex: Female

DRUGS (2)
  1. OXYCONTIN [Suspect]
     Active Substance: OXYCODONE HYDROCHLORIDE
     Indication: TIBIA FRACTURE
     Dosage: UNKNOWN
     Route: 048
     Dates: start: 200303
  2. DILAUDID [Suspect]
     Active Substance: HYDROMORPHONE HYDROCHLORIDE
     Indication: TIBIA FRACTURE
     Dosage: UNKNOWN
     Route: 048

REACTIONS (6)
  - Suicide attempt [Unknown]
  - Disturbance in attention [Unknown]
  - Tooth extraction [Unknown]
  - Overdose [Unknown]
  - Drug dependence [Unknown]
  - Cognitive disorder [Unknown]
